FAERS Safety Report 15596455 (Version 2)
Quarter: 2021Q4

REPORT INFORMATION
  Report Type: Spontaneous
  Country: DE (occurrence: DE)
  Receive Date: 20181108
  Receipt Date: 20211007
  Transmission Date: 20220303
  Serious: Yes (Congenital Anomaly)
  Sender: FDA-Public Use
  Company Number: DE-EMBRYOTOX-201804891

PATIENT

DRUGS (7)
  1. NAPROXEN [Suspect]
     Active Substance: NAPROXEN
     Dosage: 250 MILLIGRAM DAILY; 0. - 6. GESTATIONAL WEEK
     Route: 064
     Dates: start: 20180327, end: 20180508
  2. IBUPROFEN [Suspect]
     Active Substance: IBUPROFEN
     Dosage: 6.6. - 6.6. GESTATIONAL WEEK
     Route: 064
     Dates: start: 20180514, end: 20180514
  3. PREDNISOLONE [Concomitant]
     Active Substance: PREDNISOLONE
     Indication: Rheumatoid arthritis
     Dosage: 5 MILLIGRAM DAILY;
     Route: 064
     Dates: start: 20180509, end: 20180514
  4. LEVOTHYROXINE SODIUM [Concomitant]
     Active Substance: LEVOTHYROXINE SODIUM
     Indication: Hypothyroidism
     Dosage: 75 MICROGRAM DAILY;
     Route: 064
  5. VITAMINS [Concomitant]
     Active Substance: VITAMINS
     Indication: Prophylaxis of neural tube defect
     Dosage: .8 MILLIGRAM DAILY;
     Route: 064
     Dates: start: 20180327, end: 20180514
  6. OMEPRAZOLE [Concomitant]
     Active Substance: OMEPRAZOLE
     Indication: Gastritis prophylaxis
     Dosage: 20 MILLIGRAM DAILY;
     Route: 064
  7. ACETAMINOPHEN [Concomitant]
     Active Substance: ACETAMINOPHEN
     Indication: Rheumatoid arthritis
     Dosage: 500 [MG/D ]/ ON TWO OCCASIONS 500 MG EACH.
     Route: 064
     Dates: start: 20180327, end: 20180514

REACTIONS (2)
  - Anencephaly [Unknown]
  - Foetal exposure during pregnancy [Unknown]
